FAERS Safety Report 10528120 (Version 2)
Quarter: 2014Q4

REPORT INFORMATION
  Report Type: Spontaneous
  Country: US (occurrence: US)
  Receive Date: 20141020
  Receipt Date: 20141107
  Transmission Date: 20150528
  Serious: Yes (Hospitalization)
  Sender: FDA-Public Use
  Company Number: US-BAYER-2014-154421

PATIENT
  Age: 21 Year
  Sex: Female
  Weight: 86.17 kg

DRUGS (2)
  1. MIRENA [Suspect]
     Active Substance: LEVONORGESTREL
     Indication: CONTRACEPTION
     Dosage: 20 MCG/24HR, CONT
     Route: 015
     Dates: start: 20140328, end: 20140625
  2. MIRENA [Suspect]
     Active Substance: LEVONORGESTREL
     Indication: CONTRACEPTION
     Dosage: 20 MCG/24HR, CONT
     Route: 015
     Dates: start: 201112, end: 201212

REACTIONS (7)
  - Uterine perforation [None]
  - Activities of daily living impaired [None]
  - Pyrexia [None]
  - Fear of disease [None]
  - Injury [None]
  - Abdominal pain lower [None]
  - Scar [None]

NARRATIVE: CASE EVENT DATE: 20140617
